FAERS Safety Report 4472100-1 (Version None)
Quarter: 2004Q4

REPORT INFORMATION
  Report Type: 
  Country: None (occurrence: None)
  Receive Date: 20041007
  Receipt Date: 20040924
  Transmission Date: 20050328
  Serious: Yes (Life-Threatening, Hospitalization, Other)
  Sender: FDA-Public Use
  Company Number: 2004064658

PATIENT
  Age: 40 Year
  Sex: Male
  Weight: 79 kg

DRUGS (4)
  1. LIPITOR [Suspect]
     Indication: HYPERCHOLESTEROLAEMIA
     Dosage: 40 MG (40 MG, 1 IN 1 D), ORAL
     Route: 048
     Dates: start: 19970101, end: 20040101
  2. TOLBUTAMIDE [Concomitant]
  3. METFORMIN HCL [Concomitant]
  4. CETIRIZINE HCL [Concomitant]

REACTIONS (4)
  - HYPERSENSITIVITY [None]
  - HYPOTENSION [None]
  - OEDEMA [None]
  - SHOCK [None]
